FAERS Safety Report 5376710-9 (Version None)
Quarter: 2007Q3

REPORT INFORMATION
  Report Type: 
  Country: None (occurrence: None)
  Receive Date: 20070703
  Receipt Date: 20070625
  Transmission Date: 20080115
  Serious: Yes (Hospitalization)
  Sender: FDA-Public Use
  Company Number: FRWYE911325JUN07

PATIENT
  Age: 41 Year
  Sex: Male

DRUGS (7)
  1. EFFEXOR XR [Suspect]
     Indication: DEPRESSION
     Route: 048
     Dates: start: 20051209
  2. ATHYMIL [Interacting]
     Indication: DEPRESSION
     Route: 048
  3. KEPPRA [Interacting]
     Route: 048
  4. REVIA [Interacting]
     Route: 048
     Dates: start: 20070302, end: 20070302
  5. REVIA [Interacting]
     Route: 048
     Dates: start: 20070325, end: 20070325
  6. METHADONE HYDROCHLORIDE [Interacting]
     Indication: DRUG DEPENDENCE
     Dosage: 65 MG TOTAL DAILY
     Route: 048
  7. ZYPREXA [Interacting]
     Indication: PSYCHOTIC DISORDER
     Route: 048
     Dates: start: 20070125

REACTIONS (10)
  - ABDOMINAL PAIN [None]
  - AGITATION [None]
  - CHILLS [None]
  - DEHYDRATION [None]
  - DIARRHOEA [None]
  - DRUG INTERACTION [None]
  - DRUG WITHDRAWAL SYNDROME [None]
  - ELECTROLYTE IMBALANCE [None]
  - HYPERHIDROSIS [None]
  - TREMOR [None]
